FAERS Safety Report 4589792-9 (Version None)
Quarter: 2005Q1

REPORT INFORMATION
  Report Type: 
  Country: None (occurrence: None)
  Receive Date: 20050223
  Receipt Date: 20040916
  Transmission Date: 20050727
  Serious: Yes (Hospitalization)
  Sender: FDA-Public Use
  Company Number: JP-GLAXOSMITHKLINE-B0345846A

PATIENT
  Age: 78 Year
  Sex: Male
  Weight: 49 kg

DRUGS (14)
  1. VALTREX [Suspect]
     Indication: HERPES ZOSTER
     Dosage: 1000MG VARIABLE DOSE
     Route: 048
     Dates: start: 20040914, end: 20040915
  2. ROCALTROL [Concomitant]
     Indication: RENAL FAILURE CHRONIC
     Dosage: 1CAP PER DAY
     Route: 048
     Dates: start: 20040301
  3. CALTAN [Concomitant]
     Indication: HYPERPHOSPHATAEMIA
     Route: 048
     Dates: start: 20040301
  4. CHLORMADINONE ACETATE TAB [Concomitant]
     Indication: BENIGN PROSTATIC HYPERPLASIA
     Route: 048
  5. ASPIRIN [Concomitant]
     Indication: CAROTID ARTERY STENOSIS
     Route: 048
     Dates: start: 20020801
  6. DORNER [Concomitant]
     Indication: CAROTID ARTERY STENOSIS
     Route: 048
     Dates: start: 20020801
  7. EPADEL [Concomitant]
     Indication: CAROTID ARTERY STENOSIS
     Route: 048
     Dates: start: 20020801
  8. CARNACULIN [Concomitant]
     Route: 048
  9. BLOPRESS [Concomitant]
     Indication: HYPERTENSION
     Route: 048
  10. ADALAT [Concomitant]
     Indication: HYPERTENSION
     Route: 048
  11. URALYT [Concomitant]
     Route: 048
  12. ALLOPURINOL [Concomitant]
     Route: 048
  13. NEUROTROPIN [Concomitant]
     Indication: BACK PAIN
     Route: 048
  14. SIGMART [Concomitant]
     Indication: ANGINA PECTORIS
     Route: 048

REACTIONS (10)
  - DIZZINESS [None]
  - DRUG TOXICITY [None]
  - DYSLALIA [None]
  - DYSSTASIA [None]
  - GAIT DISTURBANCE [None]
  - MUSCULAR WEAKNESS [None]
  - NERVOUS SYSTEM DISORDER [None]
  - OVERDOSE [None]
  - TREMOR [None]
  - VOMITING [None]
